FAERS Safety Report 5614138-4 (Version None)
Quarter: 2008Q1

REPORT INFORMATION
  Report Type: 
  Country: None (occurrence: None)
  Receive Date: 20080130
  Receipt Date: 20080124
  Transmission Date: 20080703
  Serious: Yes (Hospitalization, Other)
  Sender: FDA-Public Use
  Company Number: THQ2008A00274

PATIENT
  Age: 75 Year
  Sex: Male

DRUGS (4)
  1. ACTOS [Suspect]
     Indication: TYPE 2 DIABETES MELLITUS
     Dosage: 30 MG (30 MG,1 IN 1 D)
     Route: 048
     Dates: start: 20040101
  2. DISGREN (TRIFLUSAL) [Concomitant]
  3. GLUCOBAY [Concomitant]
  4. DAONIL (GLIBENCLAMIDE) [Concomitant]

REACTIONS (2)
  - SYNCOPE [None]
  - TRIFASCICULAR BLOCK [None]
